FAERS Safety Report 6138477-6 (Version None)
Quarter: 2009Q1

REPORT INFORMATION
  Report Type: 
  Country: None (occurrence: None)
  Receive Date: 20090331
  Receipt Date: 20090326
  Transmission Date: 20090719
  Serious: Yes (Hospitalization, Other)
  Sender: FDA-Public Use
  Company Number: CH-BRISTOL-MYERS SQUIBB COMPANY-14564728

PATIENT
  Age: 86 Year
  Sex: Female
  Weight: 51 kg

DRUGS (6)
  1. COAPROVEL TABS 150MG/12.5MG [Suspect]
     Indication: ESSENTIAL HYPERTENSION
     Route: 048
     Dates: end: 20090219
  2. CALCIMAGON-D3 [Concomitant]
     Route: 048
  3. LANSOPRAZOLE [Concomitant]
     Dosage: CAPSULES
     Route: 048
     Dates: end: 20090219
  4. MAGNESIUM CITRATE [Concomitant]
     Dosage: STR: 1.863G POWDERS, GRANULES
     Route: 048
  5. ALGIFOR [Concomitant]
     Route: 048
  6. INEGY [Concomitant]
     Dosage: 20MG/10MG TABLETS
     Route: 048

REACTIONS (3)
  - FALL [None]
  - HYPOKALAEMIA [None]
  - HYPONATRAEMIA [None]
